FAERS Safety Report 17469890 (Version 3)
Quarter: 2020Q2

REPORT INFORMATION
  Report Type: Spontaneous
  Country: FR (occurrence: FR)
  Receive Date: 20200227
  Receipt Date: 20200603
  Transmission Date: 20200713
  Serious: Yes (Hospitalization, Other)
  Sender: FDA-Public Use
  Company Number: FR-JNJFOC-20200225011

PATIENT
  Age: 48 Year
  Sex: Male

DRUGS (1)
  1. STELARA [Suspect]
     Active Substance: USTEKINUMAB
     Indication: CROHN^S DISEASE
     Route: 058
     Dates: start: 2019

REACTIONS (12)
  - Spinal osteoarthritis [Unknown]
  - Antinuclear antibody positive [Unknown]
  - Hypoglobulinaemia [Unknown]
  - Vitamin D deficiency [Unknown]
  - Arthralgia [Unknown]
  - Hyperthyroidism [Unknown]
  - Antibody test positive [Unknown]
  - Muscular weakness [Unknown]
  - DNA antibody [Unknown]
  - Gynaecomastia [Unknown]
  - Osteitis [Unknown]
  - Muscular weakness [Unknown]

NARRATIVE: CASE EVENT DATE: 2019
